FAERS Safety Report 16660043 (Version 1)
Quarter: 2019Q3

REPORT INFORMATION
  Report Type: Spontaneous
  Country: US (occurrence: US)
  Receive Date: 20190802
  Receipt Date: 20190802
  Transmission Date: 20191004
  Serious: No
  Sender: FDA-Public Use
  Company Number: PHEH2019US031559

PATIENT
  Sex: Male

DRUGS (1)
  1. ALPELISIB [Suspect]
     Active Substance: ALPELISIB
     Indication: OSTEITIS DEFORMANS
     Dosage: 300 MG, QD
     Route: 048

REACTIONS (2)
  - Rash [Unknown]
  - Product use in unapproved indication [Unknown]
